APPROVED DRUG PRODUCT: ELURYNG
Active Ingredient: ETHINYL ESTRADIOL; ETONOGESTREL
Strength: 0.015MG/24HR;0.12MG/24HR
Dosage Form/Route: RING;VAGINAL
Application: A210830 | Product #001 | TE Code: AB
Applicant: AMNEAL PHARMACEUTICALS LLC
Approved: Dec 11, 2019 | RLD: No | RS: No | Type: RX